FAERS Safety Report 4527182-5 (Version None)
Quarter: 2004Q4

REPORT INFORMATION
  Report Type: 
  Country: None (occurrence: None)
  Receive Date: 20041214
  Receipt Date: 20041214
  Transmission Date: 20050328
  Serious: Yes (Hospitalization)
  Sender: FDA-Public Use
  Company Number: None

PATIENT
  Age: 53 Year
  Sex: Male
  Weight: 77.9733 kg

DRUGS (5)
  1. COUMADIN [Suspect]
     Indication: CORONARY ARTERY DISEASE
     Dosage: 2 MG QOD 4 MG QOD
     Dates: start: 20040201, end: 20040401
  2. INSULIN [Concomitant]
  3. COREG [Concomitant]
  4. ELAVIL [Concomitant]
  5. THIAMINE [Concomitant]

REACTIONS (1)
  - PROTHROMBIN TIME PROLONGED [None]
